FAERS Safety Report 6752445-2 (Version None)
Quarter: 2010Q2

REPORT INFORMATION
  Report Type: 
  Country: None (occurrence: None)
  Receive Date: 20100602
  Receipt Date: 20100525
  Transmission Date: 20101027
  Serious: Yes (Other)
  Sender: FDA-Public Use
  Company Number: JP-SANOFI-AVENTIS-2010SA029988

PATIENT
  Sex: Female

DRUGS (10)
  1. OXALIPLATIN [Suspect]
     Indication: LARGE INTESTINE CARCINOMA
     Route: 041
  2. OXALIPLATIN [Suspect]
     Route: 041
  3. AVASTIN [Suspect]
     Indication: LARGE INTESTINE CARCINOMA
     Route: 041
  4. AVASTIN [Suspect]
     Route: 041
  5. FLUOROURACIL [Concomitant]
     Route: 040
  6. FLUOROURACIL [Concomitant]
     Route: 041
  7. FLUOROURACIL [Concomitant]
     Route: 040
  8. FLUOROURACIL [Concomitant]
     Route: 041
  9. CALCIUM LEVOFOLINATE [Concomitant]
     Route: 041
  10. CALCIUM LEVOFOLINATE [Concomitant]
     Route: 041

REACTIONS (2)
  - BLOOD PRESSURE DECREASED [None]
  - VOMITING [None]
